FAERS Safety Report 9032985 (Version 1)
Quarter: 2013Q1

REPORT INFORMATION
  Report Type: Spontaneous
  Country: US (occurrence: US)
  Receive Date: 20130128
  Receipt Date: 20130128
  Transmission Date: 20140127
  Serious: Yes (Other)
  Sender: FDA-Public Use
  Company Number: US-JNJFOC-20121114652

PATIENT
  Age: 69 Year
  Sex: Male
  Weight: 85.73 kg

DRUGS (7)
  1. XARELTO [Suspect]
     Indication: CEREBROVASCULAR ACCIDENT PROPHYLAXIS
     Route: 048
     Dates: start: 20121102, end: 20121108
  2. XARELTO [Suspect]
     Indication: ATRIAL FIBRILLATION
     Route: 048
     Dates: start: 20121102, end: 20121108
  3. SEROQUEL [Concomitant]
  4. ATORVASTATIN [Concomitant]
  5. AMLODIPINE [Concomitant]
  6. MIRTAZAPINE [Concomitant]
  7. DIVALPROEX SODIUM [Concomitant]

REACTIONS (1)
  - Haematuria [Recovered/Resolved]
